FAERS Safety Report 4986414-X (Version None)
Quarter: 2006Q1

REPORT INFORMATION
  Report Type: 
  Country: None (occurrence: None)
  Receive Date: 20060309
  Receipt Date: 20051027
  Transmission Date: 20060701
  Serious: Yes (Disabling)
  Sender: FDA-Public Use
  Company Number: 423009

PATIENT
  Age: 39 Year
  Sex: Female
  Weight: 54 kg

DRUGS (5)
  1. ACCUTANE [Suspect]
     Indication: ACNE CYSTIC
     Dosage: 120 MG DAILY 2 PER DAY ORAL
     Route: 048
     Dates: start: 20050603, end: 20051103
  2. ALLEGRA [Concomitant]
  3. ASCORBIC ACID [Concomitant]
  4. ACIDOPHILUS (LACTOBACILLUS ACIDOPHILUS) [Concomitant]
  5. STOOL SOFTENER (STOOL SOFTENER NOS) [Concomitant]

REACTIONS (13)
  - ALOPECIA [None]
  - BACK PAIN [None]
  - CHILLS [None]
  - CONSTIPATION [None]
  - FATIGUE [None]
  - HAEMORRHOIDS [None]
  - IMPAIRED HEALING [None]
  - LIP DRY [None]
  - PYREXIA [None]
  - SKIN EXFOLIATION [None]
  - SKIN FISSURES [None]
  - SKIN ULCER [None]
  - VAGINAL DISCHARGE [None]
